FAERS Safety Report 5605941-5 (Version None)
Quarter: 2008Q1

REPORT INFORMATION
  Report Type: 
  Country: None (occurrence: None)
  Receive Date: 20080129
  Receipt Date: 20080115
  Transmission Date: 20080703
  Serious: Yes (Hospitalization)
  Sender: FDA-Public Use
  Company Number: FR-AMGEN-UK261038

PATIENT
  Sex: Female

DRUGS (5)
  1. NEULASTA [Suspect]
     Indication: DRUG USE FOR UNKNOWN INDICATION
     Dates: start: 20070101, end: 20071011
  2. DOCETAXEL [Concomitant]
     Dates: start: 20070101
  3. FLUOROURACIL [Concomitant]
     Dates: start: 20070808
  4. EPIRUBICIN [Concomitant]
     Dates: start: 20070808
  5. CYCLOPHOSPHAMIDE [Concomitant]
     Dates: start: 20070808

REACTIONS (4)
  - DRUG INEFFECTIVE [None]
  - FEBRILE NEUTROPENIA [None]
  - HYPOKALAEMIA [None]
  - MUCOSAL INFLAMMATION [None]
